FAERS Safety Report 20179646 (Version 1)
Quarter: 2021Q4

REPORT INFORMATION
  Report Type: Spontaneous
  Country: US (occurrence: US)
  Receive Date: 20211214
  Receipt Date: 20211214
  Transmission Date: 20220303
  Serious: Yes (Death, Hospitalization)
  Sender: FDA-Public Use
  Company Number: US-JNJFOC-20211211944

PATIENT
  Age: 40 Year
  Sex: Female
  Weight: 65 kg

DRUGS (1)
  1. TYLENOL [Suspect]
     Active Substance: ACETAMINOPHEN
     Indication: Abdominal pain
     Dosage: ACETAMINOPHEN 12000 MG/DAY AT A TOTAL DOSE OF ACETAMINOPHEN 60000 MG OVER 5 DAYS
     Route: 048
     Dates: end: 20030104

REACTIONS (5)
  - Accidental overdose [Fatal]
  - Brain oedema [Fatal]
  - Acute hepatic failure [Fatal]
  - Acute kidney injury [Fatal]
  - Arrhythmia [Fatal]
